FAERS Safety Report 12381119 (Version 1)
Quarter: 2016Q2

REPORT INFORMATION
  Report Type: Spontaneous
  Country: US (occurrence: US)
  Receive Date: 20160518
  Receipt Date: 20160518
  Transmission Date: 20160815
  Serious: Yes (Death, Other)
  Sender: FDA-Public Use
  Company Number: US-AMGEN-USASP2016061327

PATIENT
  Age: 57 Year
  Sex: Male

DRUGS (1)
  1. SENSIPAR [Suspect]
     Active Substance: CINACALCET HYDROCHLORIDE
     Indication: PRODUCT USED FOR UNKNOWN INDICATION
     Dosage: 30 MG, UNK
     Route: 048
     Dates: start: 201106

REACTIONS (5)
  - Dialysis [Unknown]
  - Colon cancer [Unknown]
  - Neoplasm malignant [Unknown]
  - Thyroid cancer [Unknown]
  - Death [Fatal]

NARRATIVE: CASE EVENT DATE: 2011
